FAERS Safety Report 18468691 (Version 3)
Quarter: 2020Q4

REPORT INFORMATION
  Report Type: Report from Study
  Country: KR (occurrence: KR)
  Receive Date: 20201105
  Receipt Date: 20201112
  Transmission Date: 20210114
  Serious: Yes (Death)
  Sender: FDA-Public Use
  Company Number: KR-PFIZER INC-2020427570

PATIENT
  Age: 56 Year
  Sex: Female
  Weight: 52 kg

DRUGS (5)
  1. LORLATINIB [Suspect]
     Active Substance: LORLATINIB
     Dosage: 50 MG, 2X/DAY
     Route: 048
     Dates: start: 20200922
  2. SEROQUEL [Concomitant]
     Active Substance: QUETIAPINE FUMARATE
     Indication: DELIRIUM
     Dosage: 25 MG, 1X/DAY
     Route: 048
     Dates: start: 20200910
  3. LORLATINIB [Suspect]
     Active Substance: LORLATINIB
     Dosage: 75 MG
     Route: 048
     Dates: start: 20200911, end: 20200913
  4. LASIX [Concomitant]
     Active Substance: FUROSEMIDE
     Indication: GENERALISED OEDEMA
     Dosage: 20 MG, 1X/DAY
     Route: 048
     Dates: start: 20200911
  5. LORLATINIB [Suspect]
     Active Substance: LORLATINIB
     Indication: NON-SMALL CELL LUNG CANCER
     Dosage: 100 MG
     Route: 048
     Dates: start: 20200908, end: 20200910

REACTIONS (1)
  - Neoplasm progression [Fatal]

NARRATIVE: CASE EVENT DATE: 20201005
